FAERS Safety Report 20901308 (Version 1)
Quarter: 2022Q2

REPORT INFORMATION
  Report Type: Report from Study
  Country: CN (occurrence: CN)
  Receive Date: 20220601
  Receipt Date: 20220601
  Transmission Date: 20220721
  Serious: Yes (Life-Threatening)
  Sender: FDA-Public Use
  Company Number: CN-ELI_LILLY_AND_COMPANY-CN202205012389

PATIENT

DRUGS (5)
  1. ALIMTA [Suspect]
     Active Substance: PEMETREXED DISODIUM
     Indication: Central nervous system lymphoma
     Dosage: 900 MG/M2, OTHER (EVERY 3 WEEKS OF A 6 WEEK CYCLE)
     Route: 065
  2. FOLIC ACID [Concomitant]
     Active Substance: FOLIC ACID
     Indication: Toxicity to various agents
     Dosage: 0.4 MG, DAILY (DAILY 1 WEEK BEFORE AND 3 WEEKS AFTER THE TREATMENT)
     Route: 065
  3. DEXAMETHASONE [Concomitant]
     Active Substance: DEXAMETHASONE
     Indication: Prophylaxis
     Dosage: 4 MG, BID  (DURING ONE DAY BEFORE AND ONE DAY AFTER THE TREATMENT)
     Route: 065
  4. VITAMIN B12 [Concomitant]
     Active Substance: CYANOCOBALAMIN
     Indication: Product used for unknown indication
     Dosage: 1 MG, OTHER(2 WEEKS BEFORE THE FIRST USE AND AT 9 WEEK INTERVAL DURING TREATMENT)
     Route: 030
  5. MANNITOL [Concomitant]
     Active Substance: MANNITOL
     Indication: Blood brain barrier defect
     Dosage: UNK, OTHER (EACH TIME BEFORE AND AFTER THE CHEMOTHERAPY)
     Route: 042

REACTIONS (1)
  - Vomiting [Unknown]
